FAERS Safety Report 6760208-7 (Version None)
Quarter: 2010Q2

REPORT INFORMATION
  Report Type: 
  Country: None (occurrence: None)
  Receive Date: 20100608
  Receipt Date: 20001010
  Transmission Date: 20101027
  Serious: No
  Sender: FDA-Public Use
  Company Number: 2000SUS0777

PATIENT
  Age: 33 Year
  Sex: Female

DRUGS (4)
  1. SUSTIVA [Suspect]
     Indication: ADVERSE EVENT
  2. ACETAMINOPHEN [Concomitant]
  3. COMBIVIR [Concomitant]
  4. PRENATAL VITAMINS [Concomitant]

REACTIONS (1)
  - PREGNANCY [None]
